FAERS Safety Report 13822609 (Version 1)
Quarter: 2017Q3

REPORT INFORMATION
  Report Type: Spontaneous
  Country: DE (occurrence: DE)
  Receive Date: 20170801
  Receipt Date: 20170801
  Transmission Date: 20171127
  Serious: Yes (Life-Threatening, Hospitalization, Other)
  Sender: FDA-Public Use
  Company Number: DE-SUN PHARMACEUTICAL INDUSTRIES LTD-2015R1-102977

PATIENT
  Sex: Female

DRUGS (2)
  1. LORAZEPAM. [Suspect]
     Active Substance: LORAZEPAM
     Indication: TINNITUS
  2. LORAZEPAM. [Suspect]
     Active Substance: LORAZEPAM
     Indication: AUTOINFLAMMATORY DISEASE
     Dosage: 30 MG, DAILY
     Route: 065

REACTIONS (10)
  - Balance disorder [Unknown]
  - Drug withdrawal syndrome [Unknown]
  - Tremor [Unknown]
  - Vomiting [Unknown]
  - Hypertension [Unknown]
  - Nausea [Unknown]
  - Drug dependence [Unknown]
  - Hyperhidrosis [Unknown]
  - Tachycardia [Unknown]
  - Anxiety [Unknown]
